FAERS Safety Report 23798696 (Version 1)
Quarter: 2024Q2

REPORT INFORMATION
  Report Type: Spontaneous
  Country: CN (occurrence: CN)
  Receive Date: 20240430
  Receipt Date: 20240430
  Transmission Date: 20240716
  Serious: Yes (Hospitalization)
  Sender: FDA-Public Use
  Company Number: CN-AMGEN-CHNSP2024082950

PATIENT
  Age: 68 Year
  Sex: Male

DRUGS (3)
  1. APREMILAST [Suspect]
     Active Substance: APREMILAST
     Indication: Psoriasis
     Dosage: UNK
     Route: 065
  2. ACITRETIN [Suspect]
     Active Substance: ACITRETIN
     Indication: Product used for unknown indication
     Dosage: UNK
     Route: 065
  3. TORIPALIMAB [Concomitant]
     Active Substance: TORIPALIMAB
     Indication: Hepatic cancer
     Dosage: UNK
     Route: 065
     Dates: start: 202105

REACTIONS (4)
  - Arthralgia [Recovering/Resolving]
  - Dermatitis psoriasiform [Recovering/Resolving]
  - Therapeutic response delayed [Unknown]
  - Peripheral swelling [Unknown]
